FAERS Safety Report 12435601 (Version 1)
Quarter: 2016Q2

REPORT INFORMATION
  Report Type: Spontaneous
  Country: US (occurrence: US)
  Receive Date: 20160603
  Receipt Date: 20160603
  Transmission Date: 20160815
  Serious: No
  Sender: FDA-Public Use
  Company Number: US-ROCHE-1596208

PATIENT
  Sex: Female

DRUGS (12)
  1. CYTOMEL [Concomitant]
     Active Substance: LIOTHYRONINE SODIUM
     Indication: HYPOTHYROIDISM
     Route: 048
     Dates: start: 20150325, end: 20150407
  2. AVELOX [Concomitant]
     Active Substance: MOXIFLOXACIN HYDROCHLORIDE
  3. KLONOPIN [Suspect]
     Active Substance: CLONAZEPAM
     Indication: PRODUCT USED FOR UNKNOWN INDICATION
     Route: 065
  4. SYNTHROID [Concomitant]
     Active Substance: LEVOTHYROXINE SODIUM
     Route: 065
  5. SOMATROPIN [Concomitant]
     Active Substance: SOMATROPIN
     Route: 058
  6. VALIUM [Concomitant]
     Active Substance: DIAZEPAM
     Route: 065
  7. CORTEF [Concomitant]
     Active Substance: HYDROCORTISONE
     Route: 065
  8. CABERGOLINE. [Concomitant]
     Active Substance: CABERGOLINE
     Route: 065
  9. WESTHROID [Concomitant]
     Active Substance: THYROGLOBULIN
     Route: 065
  10. DDAVP [Concomitant]
     Active Substance: DESMOPRESSIN ACETATE
     Route: 065
  11. PROMETRIUM [Concomitant]
     Active Substance: PROGESTERONE
     Route: 065
  12. VIVELLE [Concomitant]
     Active Substance: ESTRADIOL
     Route: 065

REACTIONS (1)
  - Drug hypersensitivity [Unknown]
